FAERS Safety Report 21698303 (Version 2)
Quarter: 2022Q4

REPORT INFORMATION
  Report Type: Spontaneous
  Country: CN (occurrence: CN)
  Receive Date: 20221208
  Receipt Date: 20221208
  Transmission Date: 20230112
  Serious: Yes (Life-Threatening, Hospitalization, Other)
  Sender: FDA-Public Use
  Company Number: CN-MLMSERVICE-20221124-3943209-1

PATIENT
  Age: 46 Year
  Sex: Female

DRUGS (12)
  1. EPIRUBICIN HYDROCHLORIDE [Suspect]
     Active Substance: EPIRUBICIN HYDROCHLORIDE
     Indication: Invasive ductal breast carcinoma
     Dosage: 140 MG, CYCLIC D1-2 IVGTT
     Route: 042
     Dates: start: 20170407, end: 20170925
  2. EPIRUBICIN HYDROCHLORIDE [Suspect]
     Active Substance: EPIRUBICIN HYDROCHLORIDE
     Indication: Breast cancer metastatic
  3. EPIRUBICIN HYDROCHLORIDE [Suspect]
     Active Substance: EPIRUBICIN HYDROCHLORIDE
     Indication: Metastases to lymph nodes
  4. CYCLOPHOSPHAMIDE [Concomitant]
     Active Substance: CYCLOPHOSPHAMIDE
     Indication: Invasive ductal breast carcinoma
     Dosage: 900 MG, CYCLIC D1 IVGTT
     Route: 042
     Dates: start: 20170407, end: 20170925
  5. CYCLOPHOSPHAMIDE [Concomitant]
     Active Substance: CYCLOPHOSPHAMIDE
     Indication: Breast cancer metastatic
  6. CYCLOPHOSPHAMIDE [Concomitant]
     Active Substance: CYCLOPHOSPHAMIDE
     Indication: Metastases to lymph nodes
  7. DOCETAXEL [Concomitant]
     Active Substance: DOCETAXEL
     Indication: Metastases to lymph nodes
     Dosage: 160 MG, CYCLIC
     Route: 042
     Dates: start: 20170407, end: 20170925
  8. DOCETAXEL [Concomitant]
     Active Substance: DOCETAXEL
     Indication: Invasive ductal breast carcinoma
  9. DOCETAXEL [Concomitant]
     Active Substance: DOCETAXEL
     Indication: Breast cancer metastatic
  10. HERCEPTIN [Concomitant]
     Active Substance: TRASTUZUMAB
     Indication: Invasive ductal breast carcinoma
     Dosage: 500 MG, CYCLIC IVGTT
     Route: 042
     Dates: start: 20170407, end: 20170925
  11. HERCEPTIN [Concomitant]
     Active Substance: TRASTUZUMAB
     Indication: Metastases to lymph nodes
  12. HERCEPTIN [Concomitant]
     Active Substance: TRASTUZUMAB
     Indication: Breast cancer metastatic

REACTIONS (3)
  - Cardiomyopathy [Recovered/Resolved]
  - Myelosuppression [Recovered/Resolved]
  - Myocardial oedema [Recovered/Resolved]

NARRATIVE: CASE EVENT DATE: 20170101
